FAERS Safety Report 18253018 (Version 1)
Quarter: 2020Q3

REPORT INFORMATION
  Report Type: Spontaneous
  Country: US (occurrence: US)
  Receive Date: 20200910
  Receipt Date: 20200910
  Transmission Date: 20201103
  Serious: No
  Sender: FDA-Public Use
  Company Number: US-ADAREPHARM-2020-US-000009

PATIENT
  Age: 59 Year
  Sex: Male
  Weight: 92.99 kg

DRUGS (1)
  1. PROPRANOLOL [Suspect]
     Active Substance: PROPRANOLOL HYDROCHLORIDE
     Indication: HYPERTENSION
     Dates: start: 20191211, end: 202001

REACTIONS (3)
  - Weight increased [Not Recovered/Not Resolved]
  - Arthralgia [Recovering/Resolving]
  - Dermatitis [Recovering/Resolving]
